FAERS Safety Report 11162037 (Version 1)
Quarter: 2015Q2

REPORT INFORMATION
  Report Type: Spontaneous
  Country: US (occurrence: None)
  Receive Date: 20150602
  Receipt Date: 20150602
  Transmission Date: 20150821
  Serious: No
  Sender: FDA-Public Use
  Company Number: PR 9786

PATIENT
  Age: 71 Year
  Sex: Female

DRUGS (1)
  1. THERATEARS LUBRICANT EYE DROPS [Suspect]
     Active Substance: CARBOXYMETHYLCELLULOSE SODIUM
     Dates: start: 20150514, end: 20150525

REACTIONS (3)
  - Product quality issue [None]
  - Conjunctivitis [None]
  - Product packaging issue [None]
